FAERS Safety Report 11200349 (Version 2)
Quarter: 2015Q2

REPORT INFORMATION
  Report Type: Spontaneous
  Country: JP (occurrence: JP)
  Receive Date: 20150618
  Receipt Date: 20150624
  Transmission Date: 20150821
  Serious: Yes (Hospitalization, Other)
  Sender: FDA-Public Use
  Company Number: JP-BAYER-2015-332277

PATIENT
  Age: 5 Year
  Sex: Female

DRUGS (1)
  1. ACETYLSALICYLIC ACID({=100 MG) [Suspect]
     Active Substance: ASPIRIN
     Indication: CONVULSION PROPHYLAXIS
     Dosage: DAILY DOSE 1.3 MG/KG
     Route: 048

REACTIONS (3)
  - Gastric antral vascular ectasia [Recovering/Resolving]
  - Gastric haemorrhage [Recovering/Resolving]
  - Haematemesis [Recovering/Resolving]
